FAERS Safety Report 5748159-8 (Version None)
Quarter: 2008Q2

REPORT INFORMATION
  Report Type: 
  Country: None (occurrence: None)
  Receive Date: 20080523
  Receipt Date: 20080428
  Transmission Date: 20081010
  Serious: No
  Sender: FDA-Public Use
  Company Number: US-BOEHRINGER INGELHEIM GMBH, GERMANY-2008-BP-06664BP

PATIENT
  Age: 65 Year
  Sex: Male

DRUGS (2)
  1. MICARDIS HCT [Suspect]
     Indication: HYPERTENSION
     Dosage: 40MG TELMISARTAN/12.5MG HYDROCHLOROTHIAZDE
     Route: 048
     Dates: start: 20061101
  2. SULAR [Concomitant]
     Indication: HYPERTENSION

REACTIONS (1)
  - BLOOD SODIUM DECREASED [None]
